FAERS Safety Report 5902250-1 (Version None)
Quarter: 2008Q3

REPORT INFORMATION
  Report Type: 
  Country: None (occurrence: None)
  Receive Date: 20080929
  Receipt Date: 20080922
  Transmission Date: 20090109
  Serious: No
  Sender: FDA-Public Use
  Company Number: US-B.I. PHARMACEUTICALS,INC./RIDGEFIELD-2008-BP-14808BP

PATIENT
  Sex: Male

DRUGS (1)
  1. FLOMAX [Suspect]
     Indication: BENIGN PROSTATIC HYPERPLASIA

REACTIONS (6)
  - NOCTURIA [None]
  - POLLAKIURIA [None]
  - RESIDUAL URINE [None]
  - URINARY HESITATION [None]
  - URINARY TRACT DISORDER [None]
  - URINE FLOW DECREASED [None]
